FAERS Safety Report 17109291 (Version 2)
Quarter: 2020Q1

REPORT INFORMATION
  Report Type: Spontaneous
  Country: US (occurrence: US)
  Receive Date: 20191204
  Receipt Date: 20200108
  Transmission Date: 20200409
  Serious: Yes (Hospitalization)
  Sender: FDA-Public Use
  Company Number: US-GLAXOSMITHKLINE-US2019AMR215327

PATIENT
  Sex: Female

DRUGS (1)
  1. VENTOLIN HFA [Suspect]
     Active Substance: ALBUTEROL SULFATE
     Indication: PRODUCT USED FOR UNKNOWN INDICATION
     Dosage: DAILY, 2 PUFFS EVERY 4-6 HOURS AS NEEDED,UNK
     Route: 065
     Dates: start: 20191125

REACTIONS (3)
  - Product dose omission [Unknown]
  - Product complaint [Unknown]
  - Hospitalisation [Unknown]
